FAERS Safety Report 18657387 (Version 3)
Quarter: 2021Q1

REPORT INFORMATION
  Report Type: Other
  Country: US (occurrence: US)
  Receive Date: 20201224
  Receipt Date: 20210309
  Transmission Date: 20210419
  Serious: No
  Sender: FDA-Public Use
  Company Number: US-ROCHE-2738625

PATIENT
  Sex: Female

DRUGS (17)
  1. LYRICA [Concomitant]
     Active Substance: PREGABALIN
     Route: 048
  2. PREGABALIN. [Concomitant]
     Active Substance: PREGABALIN
     Route: 048
     Dates: start: 20191010
  3. AUBAGIO [Concomitant]
     Active Substance: TERIFLUNOMIDE
     Route: 048
  4. CYMBALTA [Concomitant]
     Active Substance: DULOXETINE HYDROCHLORIDE
  5. WELLBUTRIN XL [Concomitant]
     Active Substance: BUPROPION HYDROCHLORIDE
     Dosage: TAKES TOTAL OF 450 DAY
     Route: 048
  6. NORCO [Concomitant]
     Active Substance: ACETAMINOPHEN\HYDROCODONE BITARTRATE
     Dosage: 5?325 MG
     Route: 048
     Dates: start: 20190711
  7. OCREVUS [Suspect]
     Active Substance: OCRELIZUMAB
     Indication: RELAPSING MULTIPLE SCLEROSIS
     Dosage: 300 MG/10 ML SOLUTIONS, 600 MG EVERY 6 MONTHS AFTER INITIAL 2 WEEKS LOADING DOSE?DATES OF TREATMENT:
     Route: 042
     Dates: start: 20190412
  8. GABAPENTIN. [Concomitant]
     Active Substance: GABAPENTIN
     Route: 048
     Dates: start: 20191114
  9. TRAZODONE HYDROCHLORIDE. [Concomitant]
     Active Substance: TRAZODONE HYDROCHLORIDE
     Route: 048
  10. FLAXSEED [Concomitant]
     Active Substance: FLAX SEED
     Route: 048
  11. CHOLESTYRAMINE. [Concomitant]
     Active Substance: CHOLESTYRAMINE
     Dosage: 1 PACKET MIXED WITH WATER OR NON CARBONATED DRINK
     Route: 048
     Dates: start: 20191119
  12. PROTONIX [Concomitant]
     Active Substance: PANTOPRAZOLE SODIUM
     Route: 048
  13. CALCIUM [Concomitant]
     Active Substance: CALCIUM
     Dosage: AS DIRECTED
     Route: 048
  14. DARIFENACIN HYDROBROMIDE. [Concomitant]
     Active Substance: DARIFENACIN HYDROBROMIDE
     Route: 048
     Dates: start: 20190212
  15. VITAMIN D3 [Concomitant]
     Active Substance: CHOLECALCIFEROL
     Dosage: 1000 UNIT
     Route: 048
  16. ZOLOFT [Concomitant]
     Active Substance: SERTRALINE HYDROCHLORIDE
     Route: 048
  17. TRAVATAN [Concomitant]
     Active Substance: TRAVOPROST
     Dosage: 1 DROP INTO INFECTED EYE IN THE EVENING
     Route: 047

REACTIONS (1)
  - COVID-19 [Unknown]
